FAERS Safety Report 8614405-6 (Version None)
Quarter: 2012Q3

REPORT INFORMATION
  Report Type: 
  Country: None (occurrence: None)
  Receive Date: 20120823
  Receipt Date: 20120822
  Transmission Date: 20120928
  Serious: Yes (Hospitalization, Other)
  Sender: FDA-Public Use
  Company Number: US-BAYER-2012-086426

PATIENT
  Age: 21 Year
  Sex: Female

DRUGS (15)
  1. VANCOMYCIN [Concomitant]
  2. PREDNISONE TAB [Concomitant]
  3. MICONAZOLE [Concomitant]
     Indication: VULVOVAGINAL MYCOTIC INFECTION
  4. IMMUNE GLOBULIN NOS [Concomitant]
     Dosage: 1000 MG/KG, UNK
     Route: 042
  5. ALLOPURINOL [Suspect]
     Indication: BLOOD URIC ACID INCREASED
  6. DIPHENHYDRAMINE HYDROCHLORIDE [Concomitant]
     Indication: PRURITUS
     Route: 061
  7. TOBRAMYCIN [Concomitant]
     Route: 047
  8. AMIKACIN [Concomitant]
     Route: 042
  9. IMMUNE GLOBULIN NOS [Concomitant]
     Route: 042
  10. PREDNISONE TAB [Concomitant]
  11. AMOXICILLIN AND CLAVULANATE POTASSIUM [Concomitant]
  12. PREDNISONE TAB [Concomitant]
     Dosage: DAILY DOSE 60 MG
     Route: 042
  13. PREDNISONE TAB [Concomitant]
     Dosage: DAILY DOSE 20 MG
  14. CIPROFLOXACIN [Suspect]
     Indication: URINARY TRACT INFECTION
  15. MELOXICAM [Suspect]

REACTIONS (6)
  - HAEMOLYTIC ANAEMIA [None]
  - FLUID OVERLOAD [None]
  - PERICARDIAL EFFUSION [None]
  - TOXIC EPIDERMAL NECROLYSIS [None]
  - ACUTE RESPIRATORY DISTRESS SYNDROME [None]
  - MALNUTRITION [None]
